FAERS Safety Report 6243544-2 (Version None)
Quarter: 2009Q2

REPORT INFORMATION
  Report Type: 
  Country: None (occurrence: None)
  Receive Date: 20090622
  Receipt Date: 20090609
  Transmission Date: 20091009
  Serious: Yes (Hospitalization)
  Sender: FDA-Public Use
  Company Number: 1000006914

PATIENT
  Age: 74 Year
  Sex: Male

DRUGS (3)
  1. LEXAPRO [Suspect]
     Dosage: 10 MG (10 MG,1 IN 1 D),ORAL
     Route: 048
     Dates: start: 20090305
  2. MIRTAZAPINE [Concomitant]
  3. DEANXIT (TABLETS) [Concomitant]

REACTIONS (1)
  - OSTEOARTHRITIS [None]
